FAERS Safety Report 18701858 (Version 1)
Quarter: 2021Q1

REPORT INFORMATION
  Report Type: Spontaneous
  Country: US (occurrence: US)
  Receive Date: 20210105
  Receipt Date: 20210105
  Transmission Date: 20210419
  Serious: Yes (Disabling, Other)
  Sender: FDA-Public Use
  Company Number: US-OTSUKA-2020_033327

PATIENT
  Sex: Male
  Weight: 98.88 kg

DRUGS (3)
  1. ABILIFY [Suspect]
     Active Substance: ARIPIPRAZOLE
     Indication: SEIZURE
     Dosage: UNK, QD (SPLITTING 5MG TABLETS AND TAKING HALF OF A TABLET DAILY)
     Route: 065
  2. ARIPIPRAZOLE. [Suspect]
     Active Substance: ARIPIPRAZOLE
     Indication: SEIZURE
     Dosage: 5 MG, QD
     Dates: end: 202012
  3. ADDERALL [Concomitant]
     Active Substance: AMPHETAMINE ASPARTATE\AMPHETAMINE SULFATE\DEXTROAMPHETAMINE SACCHARATE\DEXTROAMPHETAMINE SULFATE
     Indication: PRODUCT USED FOR UNKNOWN INDICATION
     Dosage: 40 MG, QD (IN THE MORNING) AND 20 MG IN THE EVENING
     Route: 065

REACTIONS (16)
  - Rash [Unknown]
  - Urticaria [Unknown]
  - Anxiety [Recovering/Resolving]
  - Product use in unapproved indication [Unknown]
  - Asthenia [Unknown]
  - Tooth extraction [Unknown]
  - Speech disorder [Unknown]
  - Social avoidant behaviour [Unknown]
  - Nausea [Unknown]
  - Apathy [Unknown]
  - Weight increased [Recovering/Resolving]
  - Dizziness [Unknown]
  - Vomiting [Unknown]
  - Disability [Not Recovered/Not Resolved]
  - Schizophrenia [Unknown]
  - Cough [Unknown]
